FAERS Safety Report 11139519 (Version 5)
Quarter: 2015Q3

REPORT INFORMATION
  Report Type: Spontaneous
  Country: US (occurrence: US)
  Receive Date: 20150527
  Receipt Date: 20150929
  Transmission Date: 20151125
  Serious: No
  Sender: FDA-Public Use
  Company Number: US-PFIZER INC-2015173659

PATIENT
  Age: 77 Year
  Sex: Male

DRUGS (9)
  1. TRAVATAN [Concomitant]
     Active Substance: TRAVOPROST
     Indication: GLAUCOMA
     Dosage: 1 OU ,HS
     Dates: start: 20050822, end: 20050824
  2. LISINOPRIL. [Concomitant]
     Active Substance: LISINOPRIL
  3. XALATAN [Suspect]
     Active Substance: LATANOPROST
     Indication: OPEN ANGLE GLAUCOMA
     Dosage: 1 GTT OU HS
     Route: 047
     Dates: start: 20050824
  4. XALATAN [Suspect]
     Active Substance: LATANOPROST
     Dosage: UNK UNK, 1X/DAY
     Route: 047
     Dates: start: 2010
  5. XALATAN [Suspect]
     Active Substance: LATANOPROST
     Dosage: UNK, 1X/DAY
     Route: 047
     Dates: start: 2010
  6. MIRTAZAPINE. [Concomitant]
     Active Substance: MIRTAZAPINE
     Dosage: UNK
  7. TEMAZEPAM. [Concomitant]
     Active Substance: TEMAZEPAM
     Dosage: UNK
  8. XANAX [Concomitant]
     Active Substance: ALPRAZOLAM
     Dosage: UNK
  9. XALATAN [Suspect]
     Active Substance: LATANOPROST
     Dosage: UNK UNK, 1X/DAY (1 OU QD HS)
     Dates: start: 20050829

REACTIONS (1)
  - No adverse event [Unknown]
